FAERS Safety Report 6237797-4 (Version None)
Quarter: 2009Q2

REPORT INFORMATION
  Report Type: 
  Country: None (occurrence: None)
  Receive Date: 20090617
  Receipt Date: 20090604
  Transmission Date: 20091009
  Serious: Yes (Other)
  Sender: FDA-Public Use
  Company Number: PAR_03020_2009

PATIENT
  Age: 57 Year
  Sex: Male

DRUGS (2)
  1. CABERGOLINE [Suspect]
     Indication: PROLACTINOMA
     Dosage: 3 MG 1X WEEK)
  2. CABERGOLINE [Suspect]
     Indication: PROLACTINOMA
     Dosage: 0.25 MG 1X WEEK

REACTIONS (2)
  - DRUG TOXICITY [None]
  - HEMIANOPIA [None]
